FAERS Safety Report 13753952 (Version 1)
Quarter: 2017Q3

REPORT INFORMATION
  Report Type: Spontaneous
  Country: US (occurrence: US)
  Receive Date: 20170714
  Receipt Date: 20170714
  Transmission Date: 20171127
  Serious: Yes (Hospitalization)
  Sender: FDA-Public Use
  Company Number: None

PATIENT
  Age: 52 Year
  Sex: Male
  Weight: 128.6 kg

DRUGS (21)
  1. OXYCODONE [Concomitant]
     Active Substance: OXYCODONE
  2. SYMBICORT [Concomitant]
     Active Substance: BUDESONIDE\FORMOTEROL FUMARATE DIHYDRATE
  3. DITROPAN [Concomitant]
     Active Substance: OXYBUTYNIN CHLORIDE
  4. POTASSIUM CHLORIDE. [Concomitant]
     Active Substance: POTASSIUM CHLORIDE
  5. DACLATASVIR 60 [Suspect]
     Active Substance: DACLATASVIR
     Indication: HEPATITIS C
     Dosage: 60 1X DAILY ORAL
     Route: 048
     Dates: start: 20160630, end: 20161215
  6. INDERAL [Concomitant]
     Active Substance: PROPRANOLOL HYDROCHLORIDE
  7. ROCEPHIN [Concomitant]
     Active Substance: CEFTRIAXONE SODIUM
  8. TYLENOL [Concomitant]
     Active Substance: ACETAMINOPHEN
  9. LASIX [Concomitant]
     Active Substance: FUROSEMIDE
  10. ALDACTONE [Concomitant]
     Active Substance: SPIRONOLACTONE
  11. SOFOSBUVIR 400 [Suspect]
     Active Substance: SOFOSBUVIR
     Indication: HEPATITIS C
     Dosage: 400 1X DAILY ORAL
     Route: 048
     Dates: start: 20160630, end: 20161215
  12. RIFAXIMIN [Concomitant]
     Active Substance: RIFAXIMIN
  13. CIPRO [Concomitant]
     Active Substance: CIPROFLOXACIN HYDROCHLORIDE
  14. LACTULOSE. [Concomitant]
     Active Substance: LACTULOSE
  15. ALBUTEROL. [Concomitant]
     Active Substance: ALBUTEROL
  16. CLAFORAN [Concomitant]
     Active Substance: CEFOTAXIME SODIUM
  17. ALBUMIN [Concomitant]
     Active Substance: ALBUMIN HUMAN
  18. BUMEX [Concomitant]
     Active Substance: BUMETANIDE
  19. PROTONIX [Concomitant]
     Active Substance: PANTOPRAZOLE SODIUM
  20. FENTANYL. [Concomitant]
     Active Substance: FENTANYL
  21. METOLAZONE. [Concomitant]
     Active Substance: METOLAZONE

REACTIONS (4)
  - Weight increased [None]
  - Dyspnoea [None]
  - Abdominal distension [None]
  - Peripheral swelling [None]

NARRATIVE: CASE EVENT DATE: 20161108
